FAERS Safety Report 8559390-0 (Version None)
Quarter: 2012Q3

REPORT INFORMATION
  Report Type: 
  Country: None (occurrence: None)
  Receive Date: 20120802
  Receipt Date: 20120724
  Transmission Date: 20120928
  Serious: Yes (Hospitalization)
  Sender: FDA-Public Use
  Company Number: IT-VERTEX PHARMACEUTICALS INC.-000000000000000518

PATIENT
  Sex: Female
  Weight: 57 kg

DRUGS (4)
  1. RIBAVIRIN [Concomitant]
     Route: 048
     Dates: start: 20120228, end: 20120412
  2. PEGINTERFERON ALFA-2B [Concomitant]
     Indication: HEPATITIS C
     Dates: start: 20120201, end: 20120419
  3. TELAPREVIR [Suspect]
     Indication: HEPATITIS C
     Dosage: DOSAGE FORM: TABLET
     Route: 048
     Dates: start: 20120201, end: 20120328
  4. RIBAVIRIN [Concomitant]
     Indication: HEPATITIS C
     Route: 048
     Dates: start: 20120201, end: 20120227

REACTIONS (1)
  - DERMATITIS EXFOLIATIVE [None]
